FAERS Safety Report 8414544-9 (Version None)
Quarter: 2012Q2

REPORT INFORMATION
  Report Type: 
  Country: None (occurrence: None)
  Receive Date: 20120605
  Receipt Date: 20120522
  Transmission Date: 20120825
  Serious: No
  Sender: FDA-Public Use
  Company Number: US-ASTRAZENECA-2012SE30154

PATIENT
  Age: 58 Year
  Sex: Female

DRUGS (2)
  1. NEXIUM [Suspect]
     Route: 048
  2. NEXIUM [Suspect]
     Route: 048

REACTIONS (10)
  - OESOPHAGEAL STENOSIS [None]
  - GASTROOESOPHAGEAL REFLUX DISEASE [None]
  - OFF LABEL USE [None]
  - DYSPHAGIA [None]
  - POLYP [None]
  - ORAL MUCOSAL BLISTERING [None]
  - ERUCTATION [None]
  - OESOPHAGEAL DISORDER [None]
  - ABDOMINAL DISTENSION [None]
  - INTENTIONAL DRUG MISUSE [None]
